FAERS Safety Report 7216918-0 (Version None)
Quarter: 2011Q1

REPORT INFORMATION
  Report Type: 
  Country: None (occurrence: None)
  Receive Date: 20110110
  Receipt Date: 20101229
  Transmission Date: 20110831
  Serious: Yes (Hospitalization, Disabling)
  Sender: FDA-Public Use
  Company Number: JP-AMGEN-JPNCT2010004059

PATIENT

DRUGS (19)
  1. CALCIUM LEVOFOLINATE [Concomitant]
     Indication: COLORECTAL CANCER
     Route: 041
     Dates: start: 20101019
  2. ATROPINE SULFATE [Concomitant]
     Dosage: UNK
     Route: 042
  3. PANITUMUMAB [Suspect]
     Indication: COLORECTAL CANCER
     Dosage: 6 MG/KG, Q2WK
     Route: 041
     Dates: start: 20101019
  4. FLUOROURACIL [Suspect]
     Indication: COLORECTAL CANCER
     Route: 041
     Dates: start: 20101019
  5. MAGNESIUM OXIDE [Concomitant]
     Dosage: UNK
     Route: 048
  6. MINOMYCIN [Concomitant]
     Route: 048
  7. PASTARON LOTION [Concomitant]
     Route: 062
  8. WARFARIN [Concomitant]
     Dosage: UNK
     Route: 048
  9. ASPIRIN [Concomitant]
     Dosage: UNK
     Route: 048
  10. PRIMPERAN TAB [Concomitant]
     Route: 042
  11. IRINOTECAN HYDROCHLORIDE [Suspect]
     Indication: COLORECTAL CANCER
     Route: 041
     Dates: start: 20101019
  12. GRANISETRON HCL [Concomitant]
     Dosage: UNK
     Route: 042
  13. CORTICOSTEROIDS [Concomitant]
     Indication: PROPHYLAXIS
     Route: 065
  14. DEXART [Concomitant]
     Dosage: UNK
     Route: 042
  15. GFO [Concomitant]
     Route: 048
  16. DAIKENTYUTO [Concomitant]
     Route: 048
  17. RANITIDINE [Concomitant]
     Dosage: UNK
     Route: 048
  18. JUZENTAIHOTO [Concomitant]
     Route: 048
  19. MUCOSTA [Concomitant]
     Dosage: UNK
     Route: 048

REACTIONS (6)
  - DECREASED APPETITE [None]
  - DRY SKIN [None]
  - STOMATITIS [None]
  - NEUROPATHY PERIPHERAL [None]
  - ACNE [None]
  - PARONYCHIA [None]
